FAERS Safety Report 8394573-4 (Version None)
Quarter: 2012Q2

REPORT INFORMATION
  Report Type: 
  Country: None (occurrence: None)
  Receive Date: 20120530
  Receipt Date: 20120525
  Transmission Date: 20120825
  Serious: Yes (Death)
  Sender: FDA-Public Use
  Company Number: TN-SANOFI-AVENTIS-2012SA037653

PATIENT
  Age: 72 Year
  Sex: Female

DRUGS (6)
  1. ASPEGIC 1000 [Concomitant]
     Route: 048
     Dates: end: 20120125
  2. INSULATARD NPH HUMAN [Concomitant]
     Route: 048
     Dates: end: 20120125
  3. PLAVIX [Suspect]
     Indication: STENT PLACEMENT
     Route: 048
     Dates: start: 20110710, end: 20120125
  4. ATORVASTATIN CALCIUM [Concomitant]
     Route: 048
     Dates: end: 20120425
  5. RAMIPRIL [Concomitant]
     Route: 048
     Dates: end: 20120125
  6. LASIX [Concomitant]
     Route: 048
     Dates: end: 20120125

REACTIONS (2)
  - PYELONEPHRITIS [None]
  - INFECTION [None]
